FAERS Safety Report 10080824 (Version 3)
Quarter: 2014Q2

REPORT INFORMATION
  Report Type: Spontaneous
  Country: US (occurrence: None)
  Receive Date: 20140414
  Receipt Date: 20140609
  Transmission Date: 20141212
  Serious: Yes (Other)
  Sender: FDA-Public Use
  Company Number: US-JNJFOC-20140405971

PATIENT
  Sex: 0

DRUGS (3)
  1. DACOGEN (DECITABINE) LYOPHILIZED POWDER [Suspect]
     Indication: ACUTE MYELOID LEUKAEMIA RECURRENT
     Dosage: IN 28 DAY
     Route: 042
  2. MIDOSTAURIN [Suspect]
     Indication: ACUTE MYELOID LEUKAEMIA RECURRENT
     Route: 048
  3. CEPHALEXIN [Concomitant]

REACTIONS (2)
  - Electrocardiogram QT prolonged [None]
  - Pulmonary toxicity [None]
